FAERS Safety Report 20910821 (Version 20)
Quarter: 2023Q1

REPORT INFORMATION
  Report Type: Report from Study
  Country: CN (occurrence: None)
  Receive Date: 20220603
  Receipt Date: 20230302
  Transmission Date: 20230417
  Serious: Yes (Hospitalization)
  Sender: FDA-Public Use
  Company Number: CN-Eisai Medical Research-EC-2022-116216

PATIENT
  Age: 69 Year
  Sex: Male
  Weight: 55.4 kg

DRUGS (6)
  1. LENVATINIB [Suspect]
     Active Substance: LENVATINIB
     Indication: Hepatocellular carcinoma
     Dosage: STARTING DOSE 12 MG, FLUCTUATED DOSE
     Route: 048
     Dates: start: 20210528, end: 20220516
  2. LENVATINIB [Suspect]
     Active Substance: LENVATINIB
     Route: 048
     Dates: start: 20220518, end: 20220809
  3. EPIRUBICIN [Suspect]
     Active Substance: EPIRUBICIN
     Indication: Hepatocellular carcinoma
     Dosage: UNKNOWN FREQUENCY
     Dates: start: 20210622, end: 20210803
  4. ENTECAVIR [Concomitant]
     Active Substance: ENTECAVIR
     Dates: start: 201906
  5. ACETAMINOPHEN\OXYCODONE HYDROCHLORIDE [Concomitant]
     Active Substance: ACETAMINOPHEN\OXYCODONE HYDROCHLORIDE
     Dates: start: 20210622
  6. LACIDIPINE [Concomitant]
     Active Substance: LACIDIPINE
     Dates: start: 20210704

REACTIONS (1)
  - Lacunar infarction [Recovered/Resolved with Sequelae]

NARRATIVE: CASE EVENT DATE: 20220423
